FAERS Safety Report 5608343-0 (Version None)
Quarter: 2008Q1

REPORT INFORMATION
  Report Type: 
  Country: None (occurrence: None)
  Receive Date: 20080130
  Receipt Date: 20080118
  Transmission Date: 20080703
  Serious: Yes (Other)
  Sender: FDA-Public Use
  Company Number: FR-BOEHRINGER INGELHEIM GMBH, GERMANY-2007-FF-01181FF

PATIENT
  Sex: Female
  Weight: 85 kg

DRUGS (6)
  1. SPIRIVA [Suspect]
     Indication: CHRONIC OBSTRUCTIVE PULMONARY DISEASE
     Route: 055
     Dates: start: 20071213
  2. FORMOAIR [Concomitant]
     Route: 055
  3. SINGULAIR [Concomitant]
     Route: 048
  4. TERBUTALINE SULFATE [Concomitant]
  5. BUDESONIDE [Concomitant]
  6. ATROVENT [Concomitant]

REACTIONS (2)
  - DRY MOUTH [None]
  - SWELLING FACE [None]
